FAERS Safety Report 9540173 (Version 1)
Quarter: 2013Q3

REPORT INFORMATION
  Report Type: Report from Study
  Country: JP (occurrence: JP)
  Receive Date: 20130920
  Receipt Date: 20130920
  Transmission Date: 20140515
  Serious: Yes (Other)
  Sender: FDA-Public Use
  Company Number: JP-ROCHE-1277790

PATIENT
  Sex: Female

DRUGS (35)
  1. TOCILIZUMAB [Suspect]
     Indication: RHEUMATOID ARTHRITIS
     Route: 041
     Dates: start: 20080526, end: 20080526
  2. TOCILIZUMAB [Suspect]
     Indication: RHEUMATOID ARTHRITIS
     Route: 041
     Dates: start: 20080623, end: 20080623
  3. TOCILIZUMAB [Suspect]
     Indication: RHEUMATOID ARTHRITIS
     Route: 041
     Dates: start: 20080722, end: 20080722
  4. TOCILIZUMAB [Suspect]
     Indication: RHEUMATOID ARTHRITIS
     Route: 041
     Dates: start: 20080819, end: 20080819
  5. TOCILIZUMAB [Suspect]
     Indication: RHEUMATOID ARTHRITIS
     Route: 041
     Dates: start: 20080919, end: 20080919
  6. TOCILIZUMAB [Suspect]
     Indication: RHEUMATOID ARTHRITIS
     Route: 041
     Dates: start: 20081021, end: 20081021
  7. TOCILIZUMAB [Suspect]
     Indication: RHEUMATOID ARTHRITIS
     Route: 041
     Dates: start: 20081126, end: 20081126
  8. TOCILIZUMAB [Suspect]
     Indication: RHEUMATOID ARTHRITIS
     Route: 041
     Dates: start: 20081217, end: 20081217
  9. TOCILIZUMAB [Suspect]
     Indication: RHEUMATOID ARTHRITIS
     Route: 041
     Dates: start: 20090121, end: 20090121
  10. TOCILIZUMAB [Suspect]
     Indication: RHEUMATOID ARTHRITIS
     Route: 041
     Dates: start: 20090217, end: 20090217
  11. TOCILIZUMAB [Suspect]
     Indication: RHEUMATOID ARTHRITIS
     Route: 041
     Dates: start: 20090317, end: 20090317
  12. TOCILIZUMAB [Suspect]
     Indication: RHEUMATOID ARTHRITIS
     Route: 041
     Dates: start: 20090414, end: 20090414
  13. TOCILIZUMAB [Suspect]
     Indication: RHEUMATOID ARTHRITIS
     Route: 041
     Dates: start: 20090729, end: 20090729
  14. TOCILIZUMAB [Suspect]
     Indication: RHEUMATOID ARTHRITIS
     Route: 041
     Dates: start: 20090828, end: 20090828
  15. TOCILIZUMAB [Suspect]
     Indication: RHEUMATOID ARTHRITIS
     Route: 041
     Dates: start: 20090928, end: 20090928
  16. TOCILIZUMAB [Suspect]
     Indication: RHEUMATOID ARTHRITIS
     Route: 041
     Dates: start: 20091026, end: 20091026
  17. TOCILIZUMAB [Suspect]
     Indication: RHEUMATOID ARTHRITIS
     Route: 041
     Dates: start: 20091228, end: 20091228
  18. TOCILIZUMAB [Suspect]
     Indication: RHEUMATOID ARTHRITIS
     Route: 041
     Dates: start: 20100125, end: 20100125
  19. TOCILIZUMAB [Suspect]
     Indication: RHEUMATOID ARTHRITIS
     Route: 041
     Dates: start: 20100219, end: 20100219
  20. TOCILIZUMAB [Suspect]
     Indication: RHEUMATOID ARTHRITIS
     Route: 041
     Dates: start: 20100319, end: 20100319
  21. TOCILIZUMAB [Suspect]
     Indication: RHEUMATOID ARTHRITIS
     Route: 041
     Dates: start: 20100409, end: 20100409
  22. TOCILIZUMAB [Suspect]
     Indication: RHEUMATOID ARTHRITIS
     Route: 041
     Dates: start: 20100506
  23. TOCILIZUMAB [Suspect]
     Indication: RHEUMATOID ARTHRITIS
     Dosage: DOSAGE IS UNCERTAIN.
     Route: 041
     Dates: end: 20120224
  24. RHEUMATREX [Concomitant]
     Indication: RHEUMATOID ARTHRITIS
     Route: 048
  25. ISCOTIN [Concomitant]
     Indication: ANTIBIOTIC PROPHYLAXIS
     Route: 048
     Dates: start: 20080521
  26. PREDNISOLONE [Concomitant]
     Indication: RHEUMATOID ARTHRITIS
     Route: 048
  27. FOLIAMIN [Concomitant]
     Indication: PROPHYLAXIS
     Route: 048
  28. BREDININ [Concomitant]
     Indication: RHEUMATOID ARTHRITIS
     Route: 048
     Dates: end: 20080722
  29. CELECOX [Concomitant]
     Indication: RHEUMATOID ARTHRITIS
     Route: 048
  30. TAKEPRON [Concomitant]
     Indication: GASTROOESOPHAGEAL REFLUX DISEASE
     Route: 048
  31. BONALON [Concomitant]
     Indication: OSTEOPOROSIS
     Route: 048
     Dates: end: 20080918
  32. PROTECADIN [Concomitant]
     Indication: GASTRITIS
     Route: 048
  33. BONALON [Concomitant]
     Indication: OSTEOPOROSIS
     Route: 048
     Dates: start: 20080919
  34. ONEALFA [Concomitant]
     Indication: OSTEOPOROSIS
     Route: 048
  35. VOLTAREN [Concomitant]
     Indication: RHEUMATOID ARTHRITIS
     Route: 054
     Dates: end: 20080721

REACTIONS (1)
  - Interstitial lung disease [Unknown]
